FAERS Safety Report 9407922 (Version 1)
Quarter: 2013Q3

REPORT INFORMATION
  Report Type: Spontaneous
  Country: US (occurrence: US)
  Receive Date: 20130718
  Receipt Date: 20130718
  Transmission Date: 20140515
  Serious: Yes (Other)
  Sender: FDA-Public Use
  Company Number: US-PFIZER INC-2013210973

PATIENT
  Sex: Female

DRUGS (1)
  1. LYRICA [Suspect]
     Dosage: UNK

REACTIONS (12)
  - Haemorrhage [Unknown]
  - Cellulitis [Unknown]
  - Osteomyelitis [Unknown]
  - Tooth abscess [Unknown]
  - Tinea pedis [Unknown]
  - Bacterial infection [Unknown]
  - Gait disturbance [Unknown]
  - Impaired work ability [Unknown]
  - Pain in extremity [Unknown]
  - Eczema [Unknown]
  - Tooth disorder [Unknown]
  - Malaise [Unknown]
